FAERS Safety Report 21440372 (Version 1)
Quarter: 2022Q4

REPORT INFORMATION
  Report Type: Report from Study
  Country: US (occurrence: US)
  Receive Date: 20221011
  Receipt Date: 20221011
  Transmission Date: 20230112
  Serious: Yes (Hospitalization)
  Sender: FDA-Public Use
  Company Number: US-AMNEAL PHARMACEUTICALS-2022-AMRX-02716

PATIENT
  Age: 63 Year
  Sex: Female
  Weight: 80.272 kg

DRUGS (3)
  1. LIORESAL [Suspect]
     Active Substance: BACLOFEN
     Dosage: 442.08507 ?G\DAY
     Route: 037
     Dates: end: 20211212
  2. LIORESAL [Suspect]
     Active Substance: BACLOFEN
     Dosage: DECREASED 20 % ?G\DAY
     Route: 037
     Dates: start: 20211212, end: 20211216
  3. LIORESAL [Suspect]
     Active Substance: BACLOFEN
     Dosage: DECREASED 10 % ?G\DAY
     Route: 037
     Dates: start: 20211216

REACTIONS (4)
  - Nausea [Recovered/Resolved]
  - Feeling abnormal [Recovered/Resolved]
  - Confusional state [Recovered/Resolved]
  - Dizziness [Recovered/Resolved]

NARRATIVE: CASE EVENT DATE: 20211211
